FAERS Safety Report 17223891 (Version 1)
Quarter: 2019Q4

REPORT INFORMATION
  Report Type: Spontaneous
  Country: US (occurrence: US)
  Receive Date: 20191209
  Receipt Date: 20191209
  Transmission Date: 20200122
  Serious: No
  Sender: FDA-Public Use
  Company Number: None

PATIENT
  Age: 62 Year
  Sex: Male
  Weight: 119 kg

DRUGS (1)
  1. METHIMAZOLE (METHIMAZOLE10MG TAB) [Suspect]
     Active Substance: METHIMAZOLE
     Indication: HYPERTHYROIDISM
     Route: 048
     Dates: start: 20190312, end: 20190418

REACTIONS (3)
  - Rash pruritic [None]
  - Drug eruption [None]
  - Vasculitis [None]

NARRATIVE: CASE EVENT DATE: 20190423
